FAERS Safety Report 13997539 (Version 1)
Quarter: 2017Q3

REPORT INFORMATION
  Report Type: Spontaneous
  Country: US (occurrence: US)
  Receive Date: 20170921
  Receipt Date: 20170921
  Transmission Date: 20171128
  Serious: No
  Sender: FDA-Public Use
  Company Number: US-ALLERGAN-1700361US

PATIENT
  Sex: Male
  Weight: 58.96 kg

DRUGS (3)
  1. PANTOPRAZOLE SODIUM. [Concomitant]
     Active Substance: PANTOPRAZOLE SODIUM
     Indication: DYSPEPSIA
     Dosage: 40 MG, BID
     Route: 048
  2. SUCRALFATE - BP [Suspect]
     Active Substance: SUCRALFATE
     Indication: COLITIS ULCERATIVE
     Dosage: 2 MG, BID
     Route: 048
     Dates: start: 2016
  3. ZANTAC [Concomitant]
     Active Substance: RANITIDINE HYDROCHLORIDE
     Indication: DYSPEPSIA
     Dosage: UNK

REACTIONS (2)
  - Gastrointestinal disorder [Unknown]
  - Dyspepsia [Not Recovered/Not Resolved]

NARRATIVE: CASE EVENT DATE: 2016
